FAERS Safety Report 25791188 (Version 1)
Quarter: 2025Q3

REPORT INFORMATION
  Report Type: Spontaneous
  Country: US (occurrence: None)
  Receive Date: 20250910
  Receipt Date: 20250910
  Transmission Date: 20251021
  Serious: Yes (Other)
  Sender: FDA-CTU
  Company Number: None

PATIENT
  Age: 56 Year
  Sex: Female

DRUGS (4)
  1. CYANOCOBALAMIN\NALTREXONE\TOPIRAMATE [Suspect]
     Active Substance: CYANOCOBALAMIN\NALTREXONE\TOPIRAMATE
     Indication: Weight decreased
     Dosage: FREQUENCY : TWICE A DAY;?
     Route: 048
     Dates: start: 20250815, end: 20250910
  2. buPROPion 150 mg/24 hours (XL) oral tablet, extended release [Concomitant]
     Dates: start: 20250815, end: 20250910
  3. Ondansetron Oral Tablet Disintegrating 4 MG [Concomitant]
     Dates: start: 20250815, end: 20250910
  4. metFORMIN 500 mg oral tablet, extended release [Concomitant]
     Dates: start: 20250815, end: 20250910

REACTIONS (1)
  - Vaginal haemorrhage [None]

NARRATIVE: CASE EVENT DATE: 20250909
